FAERS Safety Report 10686535 (Version 1)
Quarter: 2015Q1

REPORT INFORMATION
  Report Type: Spontaneous
  Country: BR (occurrence: BR)
  Receive Date: 20150101
  Receipt Date: 20150101
  Transmission Date: 20150720
  Serious: Yes (Other)
  Sender: FDA-Public Use
  Company Number: BR-ROCHE-1514216

PATIENT
  Age: 59 Year
  Sex: Male

DRUGS (17)
  1. LUCENTIS [Suspect]
     Active Substance: RANIBIZUMAB
     Indication: PRODUCT USED FOR UNKNOWN INDICATION
     Dosage: 0.6 MG X 2
     Route: 050
     Dates: start: 2009
  2. BEVACIZUMAB [Suspect]
     Active Substance: BEVACIZUMAB
     Route: 065
     Dates: start: 2012
  3. LUCENTIS [Suspect]
     Active Substance: RANIBIZUMAB
     Dosage: 0.6 MG X 8
     Route: 050
     Dates: start: 2013
  4. INSULIN [Concomitant]
     Active Substance: INSULIN NOS
  5. VISUDYNE [Concomitant]
     Active Substance: VERTEPORFIN
     Route: 065
     Dates: start: 2009
  6. BEVACIZUMAB [Suspect]
     Active Substance: BEVACIZUMAB
     Route: 065
     Dates: start: 2009
  7. BEVACIZUMAB [Suspect]
     Active Substance: BEVACIZUMAB
     Route: 065
     Dates: start: 2011
  8. LUCENTIS [Suspect]
     Active Substance: RANIBIZUMAB
     Dosage: 0.6 MG X 4
     Route: 050
     Dates: end: 20140428
  9. BEVACIZUMAB [Suspect]
     Active Substance: BEVACIZUMAB
     Indication: PRODUCT USED FOR UNKNOWN INDICATION
     Route: 065
     Dates: start: 2005
  10. BEVACIZUMAB [Suspect]
     Active Substance: BEVACIZUMAB
     Route: 065
     Dates: start: 2008
  11. BEVACIZUMAB [Suspect]
     Active Substance: BEVACIZUMAB
     Route: 065
     Dates: start: 2012
  12. DEXAMETHASONE. [Concomitant]
     Active Substance: DEXAMETHASONE
     Route: 065
  13. LUCENTIS [Suspect]
     Active Substance: RANIBIZUMAB
     Dosage: 0.6 MG X 4
     Route: 050
     Dates: start: 2014
  14. BEVACIZUMAB [Suspect]
     Active Substance: BEVACIZUMAB
     Route: 065
     Dates: start: 2006
  15. BEVACIZUMAB [Suspect]
     Active Substance: BEVACIZUMAB
     Route: 065
     Dates: start: 2007
  16. BEVACIZUMAB [Suspect]
     Active Substance: BEVACIZUMAB
     Route: 065
     Dates: start: 2010
  17. TRIAMCINOLONE [Concomitant]
     Active Substance: TRIAMCINOLONE
     Route: 065

REACTIONS (15)
  - Choroidal neovascularisation [Unknown]
  - Visual acuity reduced [Unknown]
  - Retinal oedema [Unknown]
  - Retinoschisis [Unknown]
  - Eye laser scar [Unknown]
  - Macular cyst [Unknown]
  - Retinal detachment [Unknown]
  - Macular fibrosis [Unknown]
  - Cataract [Unknown]
  - Macular oedema [Unknown]
  - Neovascular age-related macular degeneration [Unknown]
  - Retinal cyst [Unknown]
  - Angiogram retina abnormal [Unknown]
  - Cataract nuclear [Unknown]
  - Retinal disorder [Unknown]
